FAERS Safety Report 9450952 (Version 1)
Quarter: 2013Q3

REPORT INFORMATION
  Report Type: Spontaneous
  Country: GB (occurrence: None)
  Receive Date: 20130807
  Receipt Date: 20130807
  Transmission Date: 20140515
  Serious: Yes (Other)
  Sender: FDA-Public Use
  Company Number: AUR-APL-2013-06315

PATIENT
  Age: 83 Year
  Sex: Male
  Weight: 86 kg

DRUGS (15)
  1. AMOXICILLIN [Suspect]
     Indication: PRODUCT USED FOR UNKNOWN INDICATION
     Dates: start: 20130704
  2. CETIRIZINE (CETIRIZINE) [Concomitant]
  3. CLOPIDOGREL (CLOPIDROGEL) [Concomitant]
  4. DOXAZOSIN (DOXAZOSIN) [Concomitant]
  5. FINASTERIDE (FINASTERIDE) [Concomitant]
  6. FLUCLOXACILLIN (FLUCLOXACILLIN) [Concomitant]
  7. FLUTICASONE (FLUTICASONE) [Concomitant]
  8. GAVISCON (GAVISCON) [Concomitant]
  9. INDOMETACIN (INDOMETACIN) [Concomitant]
  10. LACIDIPINE (LACIDIPINE) [Concomitant]
  11. LANSOPRAZOLE (LANSOPRAZOLE) [Concomitant]
  12. RAMIPRIL (RAMIPRIL) [Concomitant]
  13. SALBUTAMOL (SALBUTAMOL) [Concomitant]
  14. SIMVASTATIN (SIMVASTATIN) [Concomitant]
  15. SODIUM CROMOGLICATE (CROMOGLICATE SODIUM) [Concomitant]

REACTIONS (2)
  - Dysphagia [None]
  - Pharyngeal oedema [None]
